FAERS Safety Report 7708797-X (Version None)
Quarter: 2011Q3

REPORT INFORMATION
  Report Type: 
  Country: None (occurrence: None)
  Receive Date: 20110824
  Receipt Date: 20110824
  Transmission Date: 20111222
  Serious: Yes (Hospitalization)
  Sender: FDA-Public Use
  Company Number: None

PATIENT
  Sex: Female
  Weight: 77.2 kg

DRUGS (5)
  1. CYCLOPHOSPHAMIDE [Suspect]
     Dosage: 4440 MG
     Dates: end: 20081008
  2. DOXORUBICIN HYDROCHLORIDE [Suspect]
     Dosage: 460 MG
     Dates: end: 20081008
  3. TAXOL [Suspect]
     Dosage: 1587 MG
     Dates: start: 20090107
  4. GEODON [Concomitant]
  5. TAMOXIFEN CITRATE [Concomitant]

REACTIONS (4)
  - FEBRILE NEUTROPENIA [None]
  - STAPHYLOCOCCUS TEST POSITIVE [None]
  - BONE MARROW FAILURE [None]
  - DEVICE RELATED INFECTION [None]
